FAERS Safety Report 10687198 (Version 1)
Quarter: 2014Q4

REPORT INFORMATION
  Report Type: Spontaneous
  Country: US (occurrence: None)
  Receive Date: 20141230
  Receipt Date: 20141230
  Transmission Date: 20150529
  Serious: Yes (Hospitalization)
  Sender: FDA-Public Use
  Company Number: None

PATIENT
  Age: 68 Year
  Sex: Male

DRUGS (1)
  1. CLINDAMYCIN [Suspect]
     Active Substance: CLINDAMYCIN\CLINDAMYCIN PHOSPHATE
     Indication: CELLULITIS
     Route: 048
     Dates: start: 20140926, end: 20140929

REACTIONS (7)
  - Acute hepatic failure [None]
  - Fluid overload [None]
  - Toxicity to various agents [None]
  - International normalised ratio increased [None]
  - Dyspnoea [None]
  - Dysarthria [None]
  - Ischaemic hepatitis [None]

NARRATIVE: CASE EVENT DATE: 20140929
